FAERS Safety Report 21897589 (Version 2)
Quarter: 2023Q1

REPORT INFORMATION
  Report Type: Spontaneous
  Country: US (occurrence: US)
  Receive Date: 20230123
  Receipt Date: 20230201
  Transmission Date: 20230417
  Serious: No
  Sender: FDA-Public Use
  Company Number: US-TEVA-2023-US-2846822

PATIENT
  Age: 23 Year
  Sex: Female

DRUGS (1)
  1. SPRINTEC [Suspect]
     Active Substance: ETHINYL ESTRADIOL\NORGESTIMATE
     Indication: Contraception
     Dosage: 0.25-0.035 MG-MG
     Route: 065

REACTIONS (4)
  - Fatigue [Unknown]
  - Feeling abnormal [Unknown]
  - Disturbance in attention [Unknown]
  - Skin disorder [Unknown]
